FAERS Safety Report 11377681 (Version 1)
Quarter: 2015Q3

REPORT INFORMATION
  Report Type: Spontaneous
  Country: US (occurrence: US)
  Receive Date: 20150811
  Receipt Date: 20150811
  Transmission Date: 20151125
  Serious: Yes (Hospitalization)
  Sender: FDA-Public Use
  Company Number: US-ELI_LILLY_AND_COMPANY-US200907000113

PATIENT
  Sex: Female

DRUGS (5)
  1. METFORMIN [Concomitant]
     Active Substance: METFORMIN HYDROCHLORIDE
     Dosage: 500 MG, UNK
  2. HUMULIN R [Suspect]
     Active Substance: INSULIN HUMAN
     Dosage: UNK, AS NEEDED
     Route: 058
  3. FUROSEMIDE. [Concomitant]
     Active Substance: FUROSEMIDE
     Dosage: 40 MG, UNK
  4. DIOVAN [Concomitant]
     Active Substance: VALSARTAN
     Dosage: 80 MG, UNK
  5. HYDROCHLOROTHIAZIDE. [Concomitant]
     Active Substance: HYDROCHLOROTHIAZIDE

REACTIONS (2)
  - Drug ineffective [Recovered/Resolved]
  - Blood glucose increased [Recovered/Resolved]
